FAERS Safety Report 7556278-9 (Version None)
Quarter: 2011Q2

REPORT INFORMATION
  Report Type: 
  Country: None (occurrence: None)
  Receive Date: 20110620
  Receipt Date: 20110606
  Transmission Date: 20111010
  Serious: Yes (Other)
  Sender: FDA-Public Use
  Company Number: US-JNJFOC-20110603845

PATIENT
  Sex: Female
  Weight: 61.24 kg

DRUGS (2)
  1. SIMPONI [Suspect]
     Indication: PSORIASIS
     Route: 058
     Dates: start: 20100901
  2. SIMPONI [Suspect]
     Indication: PSORIATIC ARTHROPATHY
     Route: 058
     Dates: start: 20100901

REACTIONS (1)
  - STAPHYLOCOCCAL INFECTION [None]
